FAERS Safety Report 10219799 (Version 1)
Quarter: 2014Q2

REPORT INFORMATION
  Report Type: Spontaneous
  Country: US (occurrence: None)
  Receive Date: 20140604
  Receipt Date: 20140604
  Transmission Date: 20141212
  Serious: Yes (Hospitalization)
  Sender: FDA-Public Use
  Company Number: None

PATIENT
  Age: 52 Year
  Sex: Male
  Weight: 76.4 kg

DRUGS (1)
  1. BEVACIZUMAB (RHUMAB VEGF) (704865) [Suspect]
     Dates: end: 20140516

REACTIONS (4)
  - Peritonitis [None]
  - Diverticulum [None]
  - Diverticular perforation [None]
  - Diverticulitis [None]
